FAERS Safety Report 5169895-0 (Version None)
Quarter: 2006Q4

REPORT INFORMATION
  Report Type: 
  Country: None (occurrence: None)
  Receive Date: 20061212
  Receipt Date: 20061110
  Transmission Date: 20070319
  Serious: Yes (Other)
  Sender: FDA-Public Use
  Company Number: JP-ROCHE-471351

PATIENT
  Age: 70 Year
  Sex: Male
  Weight: 51 kg

DRUGS (8)
  1. ROCEPHIN [Suspect]
     Indication: PNEUMONIA
     Route: 041
     Dates: start: 20061031
  2. ALDACTONE [Concomitant]
     Route: 048
     Dates: start: 20060914
  3. NITRODERM [Concomitant]
     Dosage: DOSE FORM REPORTED AS TAPE.
     Route: 062
     Dates: start: 20060914
  4. DIGOSIN [Concomitant]
     Dosage: REPORTED AS DIGOSIN TABLETS.
     Route: 048
     Dates: start: 20060914
  5. FAMOTIDINE [Concomitant]
     Route: 048
     Dates: start: 20060914
  6. DIOVAN [Concomitant]
     Route: 048
     Dates: start: 20060914
  7. MAGLAX [Concomitant]
     Route: 048
     Dates: start: 20060914
  8. BUFFERIN [Concomitant]
     Dosage: REPORTED AS BUFFERIN 81 MG().
     Route: 048
     Dates: start: 20060914

REACTIONS (4)
  - FALL [None]
  - GRAND MAL CONVULSION [None]
  - HEAD INJURY [None]
  - WOUND [None]
